FAERS Safety Report 10530365 (Version 1)
Quarter: 2014Q4

REPORT INFORMATION
  Report Type: Spontaneous
  Country: BR (occurrence: BR)
  Receive Date: 20141021
  Receipt Date: 20141021
  Transmission Date: 20150528
  Serious: Yes (Hospitalization)
  Sender: FDA-Public Use
  Company Number: BR-ASTRAZENECA-2014SE78509

PATIENT
  Sex: Female

DRUGS (9)
  1. VARICOSS [Concomitant]
     Indication: PREOPERATIVE CARE
     Route: 048
     Dates: start: 2014
  2. HEMAX [Concomitant]
     Indication: ANAEMIA
     Route: 058
  3. ATENOLOL. [Suspect]
     Active Substance: ATENOLOL
     Indication: HYPERTENSION
     Route: 048
     Dates: start: 2007
  4. POTASSIUM LOSARTAN [Concomitant]
     Indication: HYPERTENSION
     Route: 048
     Dates: start: 2007
  5. TYLEX [Concomitant]
     Active Substance: ACETAMINOPHEN\CODEINE PHOSPHATE
     Indication: PAIN
     Route: 048
  6. AMLODIPINE [Concomitant]
     Active Substance: AMLODIPINE BESYLATE
     Indication: HYPERTENSION
     Dosage: TWO TIMES A DAY
     Route: 048
     Dates: start: 2007
  7. SUMAX [Concomitant]
     Indication: MIGRAINE
     Route: 048
  8. MONOCORDIL RETARD [Concomitant]
     Indication: MYOCARDIAL ISCHAEMIA
     Route: 048
  9. IMOSEC [Concomitant]
     Active Substance: LOPERAMIDE
     Indication: DIARRHOEA
     Dosage: EVERY DAY
     Route: 048

REACTIONS (7)
  - Fall [Recovered/Resolved]
  - Anaemia [Not Recovered/Not Resolved]
  - Spinal fracture [Recovered/Resolved]
  - Diarrhoea [Not Recovered/Not Resolved]
  - Emphysema [Not Recovered/Not Resolved]
  - Bronchitis [Not Recovered/Not Resolved]
  - Intestinal perforation [Recovered/Resolved with Sequelae]

NARRATIVE: CASE EVENT DATE: 2009
